FAERS Safety Report 4657853-1 (Version None)
Quarter: 2005Q2

REPORT INFORMATION
  Report Type: 
  Country: None (occurrence: None)
  Receive Date: 20050510
  Receipt Date: 20050429
  Transmission Date: 20051028
  Serious: Yes (Life-Threatening, Hospitalization)
  Sender: FDA-Public Use
  Company Number: US-MERCK-0505USA00025

PATIENT
  Age: 72 Year
  Sex: Male

DRUGS (5)
  1. VIOXX [Suspect]
     Indication: PAIN
     Route: 048
     Dates: start: 19980101
  2. ZOCOR [Concomitant]
     Route: 065
  3. MEVACOR [Concomitant]
     Route: 065
  4. ASPIRIN [Concomitant]
     Route: 065
  5. VITAMINS (UNSPECIFIED) [Concomitant]
     Route: 065

REACTIONS (3)
  - CARDIAC ANEURYSM [None]
  - CARDIOVASCULAR DISORDER [None]
  - INFECTION [None]
